FAERS Safety Report 9651475 (Version 1)
Quarter: 2013Q4

REPORT INFORMATION
  Report Type: Spontaneous
  Country: US (occurrence: None)
  Receive Date: 20131028
  Receipt Date: 20131028
  Transmission Date: 20140711
  Serious: No
  Sender: FDA-Public Use
  Company Number: None

PATIENT
  Age: 89 Year
  Sex: Female

DRUGS (1)
  1. TEGRETOL XR [Suspect]
     Indication: TRIGEMINAL NEURALGIA
     Dosage: 11/27/2013-11/28/2013?1 QD ORAL
     Route: 048

REACTIONS (2)
  - Dizziness [None]
  - Asthenia [None]
